FAERS Safety Report 7507036-2 (Version None)
Quarter: 2011Q2

REPORT INFORMATION
  Report Type: 
  Country: None (occurrence: None)
  Receive Date: 20110526
  Receipt Date: 20110505
  Transmission Date: 20111010
  Serious: Yes (Hospitalization)
  Sender: FDA-Public Use
  Company Number: US-UCBSA-024323

PATIENT
  Sex: Male
  Weight: 49.3 kg

DRUGS (6)
  1. PENTASA [Concomitant]
     Route: 048
  2. ROWASA [Concomitant]
     Route: 054
  3. CIMZIA [Suspect]
     Indication: CROHN'S DISEASE
     Route: 058
     Dates: start: 20101019
  4. CARAFATE [Concomitant]
     Dosage: 2 TSP
     Route: 048
  5. METHOTREXATE [Concomitant]
     Dates: start: 20110417
  6. PRILOSEC [Concomitant]
     Route: 048

REACTIONS (3)
  - CROHN'S DISEASE [None]
  - RASH [None]
  - HENOCH-SCHONLEIN PURPURA [None]
